FAERS Safety Report 8133696-1 (Version None)
Quarter: 2012Q1

REPORT INFORMATION
  Report Type: 
  Country: None (occurrence: None)
  Receive Date: 20120213
  Receipt Date: 20120206
  Transmission Date: 20120608
  Serious: Yes (Death, Hospitalization, Other)
  Sender: FDA-Public Use
  Company Number: US-PFIZER INC-2012032152

PATIENT
  Sex: Female
  Weight: 81 kg

DRUGS (5)
  1. DILANTIN [Suspect]
     Dosage: 100 MG, 3X/DAY
     Route: 048
     Dates: start: 20070314, end: 20070329
  2. DILANTIN [Suspect]
     Dosage: UNK
     Route: 048
     Dates: start: 20070301, end: 20070501
  3. VINBLASTINE [Concomitant]
     Indication: CHEMOTHERAPY
     Dosage: UNK
     Dates: start: 20070305
  4. TEMODAR [Concomitant]
     Indication: CHEMOTHERAPY
     Dosage: UNK
     Dates: start: 20070305
  5. CISPLATIN [Concomitant]
     Indication: CHEMOTHERAPY
     Dosage: UNK
     Dates: start: 20070305

REACTIONS (10)
  - PAIN [None]
  - TOXIC EPIDERMAL NECROLYSIS [None]
  - CELLULITIS [None]
  - DEATH [None]
  - DERMATITIS ALLERGIC [None]
  - EYE IRRITATION [None]
  - EYE SWELLING [None]
  - STEVENS-JOHNSON SYNDROME [None]
  - BLISTER [None]
  - CONJUNCTIVITIS [None]
